FAERS Safety Report 17516057 (Version 4)
Quarter: 2020Q3

REPORT INFORMATION
  Report Type: Report from Study
  Country: ID (occurrence: ID)
  Receive Date: 20200309
  Receipt Date: 20200921
  Transmission Date: 20201102
  Serious: Yes (Hospitalization, Other)
  Sender: FDA-Public Use
  Company Number: ID-BAYER-2020-010494

PATIENT
  Age: 59 Year
  Sex: Male

DRUGS (1)
  1. NEXAVAR [Suspect]
     Active Substance: SORAFENIB
     Indication: HEPATOCELLULAR CARCINOMA
     Dosage: 200 MG, BID
     Route: 048
     Dates: start: 20191207, end: 20200829

REACTIONS (29)
  - Fatigue [Not Recovered/Not Resolved]
  - Chromaturia [Not Recovered/Not Resolved]
  - Alpha 1 foetoprotein increased [Not Recovered/Not Resolved]
  - Blood potassium decreased [None]
  - Blood albumin decreased [None]
  - Hepatic failure [Not Recovered/Not Resolved]
  - Ocular icterus [Not Recovered/Not Resolved]
  - Skin wound [Not Recovered/Not Resolved]
  - Globulins increased [None]
  - Alpha 1 foetoprotein increased [Not Recovered/Not Resolved]
  - Aspartate aminotransferase increased [Not Recovered/Not Resolved]
  - Jaundice [Not Recovered/Not Resolved]
  - Fatigue [Not Recovered/Not Resolved]
  - Gamma-glutamyltransferase increased [None]
  - Blood glucose increased [None]
  - Lip dry [Recovered/Resolved]
  - Haematocrit decreased [None]
  - Protein total increased [None]
  - Bilirubin conjugated increased [None]
  - Alanine aminotransferase increased [Not Recovered/Not Resolved]
  - Off label use [Not Recovered/Not Resolved]
  - Blood calcium decreased [Not Recovered/Not Resolved]
  - Hyperkeratosis [Recovered/Resolved]
  - Abdominal pain [Not Recovered/Not Resolved]
  - Mouth ulceration [Recovered/Resolved]
  - Liver function test increased [Not Recovered/Not Resolved]
  - Red cell distribution width increased [None]
  - Hypophagia [Recovering/Resolving]
  - Blood bilirubin increased [Not Recovered/Not Resolved]

NARRATIVE: CASE EVENT DATE: 20191207
